FAERS Safety Report 5581832-3 (Version None)
Quarter: 2008Q1

REPORT INFORMATION
  Report Type: 
  Country: None (occurrence: None)
  Receive Date: 20080104
  Receipt Date: 20080102
  Transmission Date: 20080703
  Serious: Yes (Life-Threatening, Hospitalization)
  Sender: FDA-Public Use
  Company Number: GB-JNJFOC-20080100448

PATIENT
  Sex: Female
  Weight: 85 kg

DRUGS (8)
  1. REMICADE [Suspect]
     Route: 042
  2. REMICADE [Suspect]
     Route: 042
  3. REMICADE [Suspect]
     Indication: CROHN'S DISEASE
     Route: 042
  4. METHOTREXATE [Concomitant]
  5. METHOTREXATE [Concomitant]
     Indication: CROHN'S DISEASE
  6. ATENOLOL [Concomitant]
     Indication: HYPERTENSION
  7. DICLOFENAC SODIUM [Concomitant]
     Indication: ARTHRALGIA
  8. LANSOPRAZOLE [Concomitant]
     Indication: DYSPEPSIA

REACTIONS (1)
  - SQUAMOUS CELL CARCINOMA [None]
